FAERS Safety Report 7703587-6 (Version None)
Quarter: 2011Q3

REPORT INFORMATION
  Report Type: 
  Country: None (occurrence: None)
  Receive Date: 20110823
  Receipt Date: 20110811
  Transmission Date: 20111222
  Serious: Yes (Other)
  Sender: FDA-Public Use
  Company Number: PHEH2011US01497

PATIENT
  Sex: Female

DRUGS (1)
  1. GILENYA [Suspect]
     Indication: MULTIPLE SCLEROSIS
     Dosage: 0.5 MG, QD
     Route: 048
     Dates: start: 20110808

REACTIONS (6)
  - DYSPNOEA [None]
  - LUNG INFECTION [None]
  - PHARYNGITIS STREPTOCOCCAL [None]
  - INFLUENZA LIKE ILLNESS [None]
  - FATIGUE [None]
  - PYREXIA [None]
